FAERS Safety Report 9052452 (Version 1)
Quarter: 2013Q1

REPORT INFORMATION
  Report Type: Spontaneous
  Country: US (occurrence: US)
  Receive Date: 20130207
  Receipt Date: 20130207
  Transmission Date: 20140127
  Serious: Yes (Other)
  Sender: FDA-Public Use
  Company Number: US-SANOFI-AVENTIS-2013SA010060

PATIENT
  Age: 66 Year
  Sex: Female

DRUGS (3)
  1. DIABETA [Suspect]
     Route: 065
  2. METFORMIN [Concomitant]
     Route: 065
  3. HUMULIN [Concomitant]

REACTIONS (10)
  - Meningioma [Unknown]
  - Amnesia [Unknown]
  - Asthma [Unknown]
  - Pneumonia [Unknown]
  - Weight decreased [Unknown]
  - Influenza [Recovering/Resolving]
  - Blood glucose decreased [Unknown]
  - Blood glucose increased [Unknown]
  - Glycosylated haemoglobin increased [Unknown]
  - Blood glucose abnormal [Unknown]
